FAERS Safety Report 16667811 (Version 1)
Quarter: 2019Q3

REPORT INFORMATION
  Report Type: Spontaneous
  Country: FR (occurrence: FR)
  Receive Date: 20190805
  Receipt Date: 20190805
  Transmission Date: 20191004
  Serious: Yes (Other)
  Sender: FDA-Public Use
  Company Number: FR-ASTRAZENECA-2019SF10318

PATIENT
  Age: 60 Year
  Sex: Female
  Weight: 83 kg

DRUGS (2)
  1. IBRANCE [Suspect]
     Active Substance: PALBOCICLIB
     Indication: BREAST CANCER
     Dosage: 125.0MG EVERY CYCLE
     Route: 048
     Dates: start: 20180906, end: 20190516
  2. FASLODEX [Suspect]
     Active Substance: FULVESTRANT
     Indication: BREAST CANCER
     Route: 030
     Dates: start: 20180906, end: 20190521

REACTIONS (2)
  - Pelvic pain [Not Recovered/Not Resolved]
  - Genital burning sensation [Not Recovered/Not Resolved]

NARRATIVE: CASE EVENT DATE: 201901
